FAERS Safety Report 20840376 (Version 1)
Quarter: 2022Q2

REPORT INFORMATION
  Report Type: Report from Study
  Country: US (occurrence: US)
  Receive Date: 20220517
  Receipt Date: 20220517
  Transmission Date: 20220721
  Serious: Yes (Hospitalization)
  Sender: FDA-Public Use
  Company Number: US-JNJFOC-20220526543

PATIENT
  Age: 2 Year
  Sex: Male

DRUGS (4)
  1. TRACLEER [Suspect]
     Active Substance: BOSENTAN
     Indication: Pulmonary arterial hypertension
     Dosage: 1/4(QUARTER)TABLET IN THE MORNING AND 1/2 (ONE HALF) OF A TABLET IN THE EVENING
     Route: 048
     Dates: start: 20220228
  2. MAGNESIUM SALICYLATE [Suspect]
     Active Substance: MAGNESIUM SALICYLATE
     Indication: Product used for unknown indication
     Route: 065
  3. SILDENAFIL [Concomitant]
     Active Substance: SILDENAFIL
  4. AMLODIPINE [Concomitant]
     Active Substance: AMLODIPINE BESYLATE

REACTIONS (7)
  - Pancreatitis [Unknown]
  - Pallor [Unknown]
  - Diarrhoea [Unknown]
  - Hypotension [Unknown]
  - Heart rate decreased [Unknown]
  - Off label use [Unknown]
  - Product use issue [Unknown]

NARRATIVE: CASE EVENT DATE: 20220228
